FAERS Safety Report 24881031 (Version 2)
Quarter: 2025Q1

REPORT INFORMATION
  Report Type: Spontaneous
  Country: US (occurrence: US)
  Receive Date: 20250124
  Receipt Date: 20250219
  Transmission Date: 20250409
  Serious: No
  Sender: JOHNSON AND JOHNSON
  Company Number: US-JNJFOC-20250109567

PATIENT
  Age: 69 Year
  Sex: Male

DRUGS (1)
  1. MACITENTAN\TADALAFIL [Suspect]
     Active Substance: MACITENTAN\TADALAFIL
     Indication: Product used for unknown indication
     Dosage: 10/20MG
     Route: 048
     Dates: start: 20241125, end: 20241204

REACTIONS (11)
  - Hot flush [Unknown]
  - Nasal congestion [Unknown]
  - Dyspnoea [Unknown]
  - Flushing [Unknown]
  - Heart rate increased [Unknown]
  - Oxygen therapy [Unknown]
  - Chills [Unknown]
  - Peripheral swelling [Unknown]
  - Dry mouth [Unknown]
  - Fatigue [Unknown]
  - Product dose omission issue [Unknown]

NARRATIVE: CASE EVENT DATE: 20241201
